FAERS Safety Report 8096163-X (Version None)
Quarter: 2012Q1

REPORT INFORMATION
  Report Type: 
  Country: None (occurrence: None)
  Receive Date: 20120131
  Receipt Date: 20120124
  Transmission Date: 20120608
  Serious: Yes (Other)
  Sender: FDA-Public Use
  Company Number: JP-GLAXOSMITHKLINE-B0777804A

PATIENT

DRUGS (3)
  1. LITHIUM CARBONATE [Concomitant]
     Route: 048
  2. LAMICTAL [Suspect]
     Indication: PRODUCT USED FOR UNKNOWN INDICATION
     Route: 048
  3. TEGRETOL [Concomitant]
     Route: 048

REACTIONS (2)
  - NEPHROPATHY TOXIC [None]
  - SOMNOLENCE [None]
